FAERS Safety Report 9842798 (Version 2)
Quarter: 2014Q1

REPORT INFORMATION
  Report Type: Spontaneous
  Country: US (occurrence: None)
  Receive Date: 20131223
  Receipt Date: 20140228
  Transmission Date: 20141002
  Serious: No
  Sender: FDA-Public Use
  Company Number: 222378LEO

PATIENT
  Age: 67 Year
  Sex: Female

DRUGS (2)
  1. PICATO (0.015%, GEL) [Suspect]
     Indication: PRODUCT USED FOR UNKNOWN INDICATION
     Dosage: 1 TUBE DAILY (DAILY), DERMAL
     Dates: start: 20130613
  2. SIMVASTATIN (SIMVASTATIN) [Concomitant]

REACTIONS (2)
  - Application site erythema [None]
  - Application site exfoliation [None]
